FAERS Safety Report 23975494 (Version 1)
Quarter: 2024Q2

REPORT INFORMATION
  Report Type: Spontaneous
  Country: US (occurrence: US)
  Receive Date: 20240614
  Receipt Date: 20240614
  Transmission Date: 20240716
  Serious: No
  Sender: FDA-Public Use
  Company Number: US-UCBSA-2024021502

PATIENT
  Sex: Female

DRUGS (1)
  1. BIMZELX [Suspect]
     Active Substance: BIMEKIZUMAB-BKZX
     Indication: Illness
     Dosage: 320 MG (2 PENS) UNDER THE SKIN FOR ON WEEK 12, WEEK 16, THEN EVERY 8 WEEKS THEREAFTER
     Route: 058

REACTIONS (1)
  - Psoriasis [Unknown]
